FAERS Safety Report 6406075-2 (Version None)
Quarter: 2009Q4

REPORT INFORMATION
  Report Type: 
  Country: None (occurrence: None)
  Receive Date: 20091019
  Receipt Date: 20091009
  Transmission Date: 20100525
  Serious: Yes (Hospitalization)
  Sender: FDA-Public Use
  Company Number: CA-ELI_LILLY_AND_COMPANY-CA200910002998

PATIENT
  Age: 61 Year
  Sex: Female

DRUGS (8)
  1. FORTEO [Suspect]
     Indication: OSTEOPOROSIS
     Dosage: 20 UG, DAILY (1/D)
     Dates: start: 20080908
  2. CODEINE [Concomitant]
     Dosage: 50 MG, 2/D
  3. CALCIUM W/VITAMIN D NOS [Concomitant]
  4. VENLAFAXINE [Concomitant]
  5. RAMIPRIL [Concomitant]
     Dosage: 10 MG, UNK
  6. METFORMIN HYDROCHLORIDE [Concomitant]
  7. AMLODIPINE [Concomitant]
  8. NORVASC [Concomitant]

REACTIONS (1)
  - MEDICAL DEVICE IMPLANTATION [None]
